FAERS Safety Report 5076302-5 (Version None)
Quarter: 2006Q3

REPORT INFORMATION
  Report Type: 
  Country: None (occurrence: None)
  Receive Date: 20060807
  Receipt Date: 20060726
  Transmission Date: 20061208
  Serious: Yes (Other)
  Sender: FDA-Public Use
  Company Number: 2006BH011613

PATIENT
  Age: 73 Year
  Sex: Male

DRUGS (8)
  1. EXTRANEAL [Suspect]
     Indication: DIALYSIS
     Dosage: IP
     Route: 033
  2. LASIX [Concomitant]
  3. ALFACALCIDOL [Concomitant]
  4. VALSARTAN [Concomitant]
  5. FAMOTIDINE [Concomitant]
  6. GASMOTIN [Concomitant]
  7. SEVELAMER HYDROCHLORIDE [Concomitant]
  8. ESPO [Concomitant]

REACTIONS (3)
  - EOSINOPHIL PERCENTAGE INCREASED [None]
  - TOXIC EPIDERMAL NECROLYSIS [None]
  - WHITE BLOOD CELL COUNT DECREASED [None]
